FAERS Safety Report 6521491-6 (Version None)
Quarter: 2009Q4

REPORT INFORMATION
  Report Type: 
  Country: None (occurrence: None)
  Receive Date: 20091222
  Receipt Date: 20090727
  Transmission Date: 20100525
  Serious: Yes (Hospitalization)
  Sender: FDA-Public Use
  Company Number: DSA_41650_2009

PATIENT
  Sex: Female

DRUGS (11)
  1. DILTIAZEM HYDROCHLORIDE [Suspect]
     Indication: HYPERTENSION
     Dosage: 0RAL
     Route: 048
     Dates: start: 20090428, end: 20090428
  2. ALDACTAZINE  (SPIRONOLACTONE ALTIZIDE) ) [Suspect]
     Indication: HYPERTENSION
     Dosage: (DF ORAL)
     Route: 048
     Dates: start: 20090428, end: 20090428
  3. DI-ANTALVIC / (DI-ANTALVIC- (PARACETAMOL+DEXTROPROPOXYPHENE) ) [Suspect]
     Indication: DRUG USE FOR UNKNOWN INDICATION
     Dosage: (1 DF }QID ORAL)
     Route: 048
     Dates: start: 20090101, end: 20090507
  4. TRAMADOL HYDROCHLORIDE [Suspect]
     Indication: DRUG USE FOR UNKNOWN INDICATION
     Dosage: (100 MG BID ORAL)
     Route: 048
     Dates: start: 20090101, end: 20090507
  5. LOXEN [Concomitant]
  6. AMIODARONE HCL [Concomitant]
  7. DAFLON [Concomitant]
  8. SPIRIVA [Concomitant]
  9. SERETIDE [Concomitant]
  10. VENTOLIN [Concomitant]
  11. OXYGEN [Concomitant]

REACTIONS (7)
  - DRUG ERUPTION [None]
  - EOSINOPHILIA [None]
  - INSOMNIA [None]
  - NAUSEA [None]
  - ORAL MUCOSA EROSION [None]
  - PALMAR-PLANTAR ERYTHRODYSAESTHESIA SYNDROME [None]
  - PRURITUS [None]
